FAERS Safety Report 10524777 (Version 1)
Quarter: 2014Q4

REPORT INFORMATION
  Report Type: Spontaneous
  Country: US (occurrence: US)
  Receive Date: 20141017
  Receipt Date: 20141017
  Transmission Date: 20150528
  Serious: No
  Sender: FDA-Public Use
  Company Number: US-PFIZER INC-2014284476

PATIENT
  Sex: Female
  Weight: 85 kg

DRUGS (1)
  1. DICLOFENAC SODIUM/MISOPROSTOL [Suspect]
     Active Substance: DICLOFENAC SODIUM\MISOPROSTOL
     Dosage: [DICLOFENAC SODIUM 75 MG]/[MISOPROSTOL 200 MCG], 1 DF, 2X/DAY

REACTIONS (1)
  - Abdominal discomfort [Unknown]
